FAERS Safety Report 4545079-1 (Version None)
Quarter: 2004Q4

REPORT INFORMATION
  Report Type: 
  Country: None (occurrence: None)
  Receive Date: 20041222
  Receipt Date: 20040621
  Transmission Date: 20050328
  Serious: Yes (Life-Threatening, Hospitalization)
  Sender: FDA-Public Use
  Company Number: US_0406103580

PATIENT
  Age: 13 Year
  Sex: Female
  Weight: 76 kg

DRUGS (2)
  1. HUMALOG [Suspect]
  2. LANTUS [Concomitant]

REACTIONS (2)
  - HYPOGLYCAEMIC SEIZURE [None]
  - MEDICATION ERROR [None]
